FAERS Safety Report 8851018 (Version 1)
Quarter: 2012Q4

REPORT INFORMATION
  Report Type: 
  Country: US (occurrence: US)
  Receive Date: 20121019
  Receipt Date: 20121019
  Transmission Date: 20130627
  Serious: Yes (Hospitalization, Other)
  Sender: FDA-Public Use
  Company Number: US-JNJFOC-20121007810

PATIENT
  Sex: Male
  Weight: 99.79 kg

DRUGS (4)
  1. INVEGA [Suspect]
     Indication: BIPOLAR DISORDER
     Route: 048
     Dates: start: 2008, end: 201207
  2. INVEGA [Suspect]
     Indication: BIPOLAR DISORDER
     Route: 048
     Dates: start: 2012
  3. INVEGA SUSTENNA [Suspect]
     Indication: BIPOLAR DISORDER
     Route: 030
     Dates: start: 2010, end: 201207
  4. INVEGA SUSTENNA [Suspect]
     Indication: BIPOLAR DISORDER
     Route: 030
     Dates: start: 201207

REACTIONS (7)
  - Intestinal dilatation [Unknown]
  - Pneumonia [Unknown]
  - Overdose [Not Recovered/Not Resolved]
  - Adverse event [Unknown]
  - Disturbance in attention [Not Recovered/Not Resolved]
  - Malaise [Not Recovered/Not Resolved]
  - Alcohol poisoning [Not Recovered/Not Resolved]
